FAERS Safety Report 8392085-5 (Version None)
Quarter: 2012Q2

REPORT INFORMATION
  Report Type: 
  Country: None (occurrence: None)
  Receive Date: 20120525
  Receipt Date: 20120525
  Transmission Date: 20120825
  Serious: Yes (Other)
  Sender: FDA-Public Use
  Company Number: None

PATIENT
  Age: 34 Year
  Sex: Female
  Weight: 58 kg

DRUGS (1)
  1. REMBRANDT 2-HOUR WHITE KIT [Suspect]
     Indication: DENTAL CARE
     Dosage: WHOLE KIT, ONCE , DENTAL
     Route: 004
     Dates: start: 20120429, end: 20120429

REACTIONS (8)
  - GINGIVAL BLISTER [None]
  - ORAL MUCOSAL EXFOLIATION [None]
  - GINGIVITIS [None]
  - CHEILITIS [None]
  - HYPOPHAGIA [None]
  - GINGIVAL ERYTHEMA [None]
  - LIP SWELLING [None]
  - GINGIVAL DISORDER [None]
